FAERS Safety Report 4430668-5 (Version None)
Quarter: 2004Q3

REPORT INFORMATION
  Report Type: 
  Country: None (occurrence: None)
  Receive Date: 20040721
  Receipt Date: 20040414
  Transmission Date: 20050211
  Serious: Yes (Hospitalization)
  Sender: FDA-Public Use
  Company Number: WAES 0404USA01331

PATIENT
  Age: 64 Year
  Sex: Male
  Weight: 121.564 kg

DRUGS (10)
  1. VIOXX [Suspect]
     Indication: ARTHRITIS
     Dosage: 25 MG/PO
     Route: 048
     Dates: end: 20030919
  2. CELEBREX [Suspect]
  3. AVAPRO [Concomitant]
  4. GLUCOPHASE [Concomitant]
  5. HUMULIN [Concomitant]
  6. LASIX [Concomitant]
  7. LIPITOR [Concomitant]
  8. NORVASC [Concomitant]
  9. WELLBUTRIN [Concomitant]
  10. TRAMADOL HYDROCHLORIDE [Concomitant]

REACTIONS (1)
  - GASTRIC HAEMORRHAGE [None]
